FAERS Safety Report 8599634 (Version 4)
Quarter: 2014Q4

REPORT INFORMATION
  Report Type: Report from Study
  Country: GB (occurrence: GB)
  Receive Date: 20120605
  Receipt Date: 20141128
  Transmission Date: 20150529
  Serious: Yes (Death, Hospitalization, Other)
  Sender: FDA-Public Use
  Company Number: GB-ROCHE-1075036

PATIENT
  Age: 77 Year
  Sex: Male

DRUGS (5)
  1. ATENOLOL. [Concomitant]
     Active Substance: ATENOLOL
     Route: 065
     Dates: start: 20120402
  2. RANIBIZUMAB [Suspect]
     Active Substance: RANIBIZUMAB
     Indication: AGE-RELATED MACULAR DEGENERATION
     Route: 050
     Dates: start: 20080719, end: 20111230
  3. AMLODIPINE [Concomitant]
     Active Substance: AMLODIPINE BESYLATE
     Route: 065
     Dates: start: 2004
  4. AMLODIPINE [Concomitant]
     Active Substance: AMLODIPINE BESYLATE
     Route: 065
     Dates: start: 20120402
  5. ATENOLOL. [Concomitant]
     Active Substance: ATENOLOL
     Route: 065
     Dates: start: 2004

REACTIONS (9)
  - White blood cell count increased [Fatal]
  - Left ventricular failure [Fatal]
  - Acute kidney injury [Fatal]
  - Hypertension [Recovered/Resolved]
  - Pulmonary oedema [Fatal]
  - Monocyte count increased [Fatal]
  - Lymphocyte count increased [Fatal]
  - Acute myocardial infarction [Fatal]
  - Neutrophil count increased [Fatal]

NARRATIVE: CASE EVENT DATE: 20120401
